FAERS Safety Report 8081085-0 (Version None)
Quarter: 2012Q1

REPORT INFORMATION
  Report Type: 
  Country: None (occurrence: None)
  Receive Date: 20120130
  Receipt Date: 20120123
  Transmission Date: 20120608
  Serious: Yes (Other)
  Sender: FDA-Public Use
  Company Number: US-BAYER-2012-007559

PATIENT
  Age: 61 Year
  Sex: Male

DRUGS (13)
  1. PLAVIX [Suspect]
     Indication: CORONARY ARTERY DISEASE
     Route: 048
  2. VITAMIN D [Concomitant]
  3. CENTRUM [Concomitant]
  4. AVALIDE [Concomitant]
  5. LIVALO [Concomitant]
  6. PRILOSEC [Concomitant]
     Dosage: UNK
  7. LOVAZA [Concomitant]
  8. NEBIVOLOL [Concomitant]
  9. COENZYME Q10 [Concomitant]
  10. LUNESTA [Concomitant]
  11. WELCHOL [Concomitant]
  12. TRICOR [Concomitant]
  13. ASPIRIN [Suspect]
     Dosage: 81 MG, QD

REACTIONS (1)
  - BLEEDING TIME ABNORMAL [None]
